FAERS Safety Report 5581424-6 (Version None)
Quarter: 2007Q4

REPORT INFORMATION
  Report Type: 
  Country: None (occurrence: None)
  Receive Date: 20071231
  Receipt Date: 20071214
  Transmission Date: 20080405
  Serious: Yes (Hospitalization, Other)
  Sender: FDA-Public Use
  Company Number: 2007BI024331

PATIENT
  Age: 50 Year
  Sex: Female
  Weight: 81.6475 kg

DRUGS (1)
  1. AVONEX [Suspect]
     Indication: MULTIPLE SCLEROSIS
     Dosage: 30 UG QW IM
     Route: 030
     Dates: start: 20060811

REACTIONS (18)
  - ABASIA [None]
  - ABSCESS [None]
  - ANAEMIA [None]
  - BLOOD CULTURE POSITIVE [None]
  - BLOOD GLUCOSE INCREASED [None]
  - BLOOD POTASSIUM DECREASED [None]
  - BLOOD PRESSURE SYSTOLIC INCREASED [None]
  - CELLULITIS [None]
  - GAIT DISTURBANCE [None]
  - HEART RATE INCREASED [None]
  - INJECTION SITE INFECTION [None]
  - INJECTION SITE REACTION [None]
  - MYOSITIS [None]
  - PAIN IN EXTREMITY [None]
  - POOR VENOUS ACCESS [None]
  - PURULENCE [None]
  - RESPIRATORY RATE INCREASED [None]
  - STAPHYLOCOCCAL INFECTION [None]
